FAERS Safety Report 8494076-2 (Version None)
Quarter: 2012Q2

REPORT INFORMATION
  Report Type: 
  Country: None (occurrence: None)
  Receive Date: 20120629
  Receipt Date: 20120629
  Transmission Date: 20120825
  Serious: Yes (Hospitalization)
  Sender: FDA-Public Use
  Company Number: None

PATIENT
  Age: 69 Year
  Sex: Male
  Weight: 95 kg

DRUGS (2)
  1. KOMBIGLYZE XR [Suspect]
     Indication: TYPE 2 DIABETES MELLITUS
     Dosage: 2.5MG/1000MG BID
     Dates: start: 20120606, end: 20120623
  2. GABAPENTIN [Suspect]
     Indication: PRODUCT USED FOR UNKNOWN INDICATION
     Dosage: 100 MG TID PO
     Route: 048
     Dates: start: 20120606, end: 20120628

REACTIONS (2)
  - MENTAL STATUS CHANGES [None]
  - TUBULOINTERSTITIAL NEPHRITIS [None]
